FAERS Safety Report 8530696-4 (Version None)
Quarter: 2012Q3

REPORT INFORMATION
  Report Type: 
  Country: None (occurrence: None)
  Receive Date: 20120723
  Receipt Date: 20120713
  Transmission Date: 20120928
  Serious: Yes (Other)
  Sender: FDA-Public Use
  Company Number: US-ASTRAZENECA-2012SE48806

PATIENT
  Age: 15923 Day
  Sex: Female
  Weight: 48.8 kg

DRUGS (7)
  1. BACTRIM DA [Concomitant]
  2. ATIVAN [Concomitant]
  3. ADDERALL XR 10 [Concomitant]
  4. CITALOPRAM HYDROBROMIDE [Concomitant]
  5. KEPPRA [Concomitant]
  6. AZD6474 [Suspect]
     Indication: GLIOBLASTOMA MULTIFORME
     Route: 048
     Dates: start: 20120620
  7. SIROLIMUS [Suspect]
     Indication: GLIOBLASTOMA MULTIFORME
     Route: 048
     Dates: start: 20120620, end: 20120710

REACTIONS (3)
  - LYMPHOCYTE COUNT DECREASED [None]
  - PLATELET COUNT DECREASED [None]
  - WHITE BLOOD CELL COUNT DECREASED [None]
